FAERS Safety Report 18154206 (Version 2)
Quarter: 2020Q3

REPORT INFORMATION
  Report Type: Other
  Country: US (occurrence: US)
  Receive Date: 20200816
  Receipt Date: 20200825
  Transmission Date: 20201103
  Serious: Yes (Other)
  Sender: FDA-Public Use
  Company Number: US-ROCHE-2659529

PATIENT
  Sex: Male

DRUGS (2)
  1. XELODA [Suspect]
     Active Substance: CAPECITABINE
     Indication: COLON CANCER
     Dosage: TAKE 3 TABLETS TWICE A DAY FOR 2 WEEKS.
     Route: 048
  2. XELODA [Suspect]
     Active Substance: CAPECITABINE
     Indication: PROSTATE CANCER

REACTIONS (1)
  - Prostate cancer [Unknown]
